FAERS Safety Report 4598631-1 (Version None)
Quarter: 2005Q1

REPORT INFORMATION
  Report Type: 
  Country: None (occurrence: None)
  Receive Date: 20050301
  Receipt Date: 20050301
  Transmission Date: 20050727
  Serious: Yes (Hospitalization)
  Sender: FDA-Public Use
  Company Number: None

PATIENT
  Sex: Male
  Weight: 70.1 kg

DRUGS (1)
  1. IRESSA [Suspect]
     Indication: HEPATIC NEOPLASM MALIGNANT
     Dosage: 500MG M/QD ORAL
     Route: 048
     Dates: start: 20040830, end: 20050202

REACTIONS (11)
  - BLOOD CULTURE POSITIVE [None]
  - CLOSTRIDIUM COLITIS [None]
  - FALL [None]
  - FATIGUE [None]
  - HAEMATEMESIS [None]
  - HYPOTENSION [None]
  - MALAISE [None]
  - RECTAL HAEMORRHAGE [None]
  - RENAL FAILURE ACUTE [None]
  - STAPHYLOCOCCAL INFECTION [None]
  - STOMATITIS [None]
